FAERS Safety Report 7278583-6 (Version None)
Quarter: 2011Q1

REPORT INFORMATION
  Report Type: 
  Country: None (occurrence: None)
  Receive Date: 20110207
  Receipt Date: 20110128
  Transmission Date: 20110831
  Serious: Yes (Life-Threatening, Hospitalization)
  Sender: FDA-Public Use
  Company Number: PHHY2011GB06602

PATIENT
  Age: 37 Year
  Sex: Female
  Weight: 60 kg

DRUGS (7)
  1. PROPOFOL [Suspect]
     Indication: ANAESTHESIA
     Dosage: 200 MG, UNK
     Route: 042
     Dates: start: 20101214, end: 20101214
  2. CODEINE SULFATE [Concomitant]
  3. LIDOCAINE [Suspect]
     Indication: ANALGESIC THERAPY
     Dosage: 10 MG, UNK
     Route: 042
     Dates: start: 20101214, end: 20101214
  4. PARACETAMOL [Concomitant]
  5. SUCCINYLCHOLINE CHLORIDE [Suspect]
     Indication: HYPOTONIA
     Dosage: 75 MG, UNK
     Route: 042
     Dates: start: 20101214, end: 20101214
  6. MIDAZOLAM [Suspect]
     Indication: SEDATION
     Dosage: 2 MG, UNK
     Route: 042
     Dates: start: 20101214, end: 20101214
  7. FENTANYL [Suspect]
     Indication: ANALGESIC THERAPY
     Dosage: 75 UG, UNK
     Route: 042
     Dates: start: 20101214, end: 20101214

REACTIONS (5)
  - RASH GENERALISED [None]
  - ANAPHYLACTIC REACTION [None]
  - BRONCHOSPASM [None]
  - CIRCULATORY COLLAPSE [None]
  - OEDEMA [None]
